FAERS Safety Report 11977305 (Version 1)
Quarter: 2016Q1

REPORT INFORMATION
  Report Type: Spontaneous
  Country: US (occurrence: US)
  Receive Date: 20160129
  Receipt Date: 20160129
  Transmission Date: 20160526
  Serious: No
  Sender: FDA-Public Use
  Company Number: US-GLAXOSMITHKLINE-US2016011172

PATIENT
  Sex: Female

DRUGS (1)
  1. FLONASE [Suspect]
     Active Substance: FLUTICASONE PROPIONATE
     Indication: NASOPHARYNGITIS
     Dosage: UNK
     Dates: start: 20160126

REACTIONS (6)
  - Rhinorrhoea [Unknown]
  - Product use issue [Unknown]
  - Insomnia [Unknown]
  - Initial insomnia [Unknown]
  - Tachyphrenia [Unknown]
  - Cough [Unknown]
